FAERS Safety Report 18869610 (Version 2)
Quarter: 2021Q1

REPORT INFORMATION
  Report Type: Spontaneous
  Country: US (occurrence: US)
  Receive Date: 20210210
  Receipt Date: 20210216
  Transmission Date: 20210420
  Serious: Yes (Other)
  Sender: FDA-Public Use
  Company Number: US-CELLTRION INC.-2021US001327

PATIENT

DRUGS (3)
  1. TRUXIMA [Suspect]
     Active Substance: RITUXIMAB-ABBS
     Indication: RHEUMATOID ARTHRITIS
     Dosage: UNK
     Dates: start: 20200826
  2. TRUXIMA [Suspect]
     Active Substance: RITUXIMAB-ABBS
     Dosage: UNK
     Dates: start: 20201229
  3. TRUXIMA [Suspect]
     Active Substance: RITUXIMAB-ABBS
     Indication: NEPHRITIC SYNDROME
     Dosage: UNK
     Dates: start: 20200909

REACTIONS (3)
  - Off label use [Unknown]
  - COVID-19 [Unknown]
  - Pneumonia [Unknown]
